FAERS Safety Report 8236023-4 (Version None)
Quarter: 2012Q1

REPORT INFORMATION
  Report Type: 
  Country: None (occurrence: None)
  Receive Date: 20120326
  Receipt Date: 20120321
  Transmission Date: 20120608
  Serious: Yes (Death, Other)
  Sender: FDA-Public Use
  Company Number: JP-ASTRAZENECA-2012SE12833

PATIENT
  Age: 75 Year
  Sex: Male
  Weight: 59 kg

DRUGS (6)
  1. CRESTOR [Suspect]
     Indication: DYSLIPIDAEMIA
     Route: 048
     Dates: start: 20100409
  2. LANSOPRAZOLE [Concomitant]
     Indication: ANGINA PECTORIS
     Route: 048
     Dates: start: 20111020
  3. ASPIRIN [Concomitant]
     Indication: ANGINA PECTORIS
     Route: 048
     Dates: start: 20110409, end: 20111019
  4. PLAVIX [Concomitant]
     Indication: ANGINA PECTORIS
     Route: 048
     Dates: start: 20111020
  5. ASPIRIN [Concomitant]
     Route: 048
     Dates: start: 20111020
  6. IRBESARTAN [Concomitant]
     Indication: HYPERTENSION
     Route: 048
     Dates: start: 20110305

REACTIONS (5)
  - CARDIO-RESPIRATORY ARREST [None]
  - TOXIC SKIN ERUPTION [None]
  - VIRAL INFECTION [None]
  - RHABDOMYOLYSIS [None]
  - RENAL FAILURE ACUTE [None]
